FAERS Safety Report 26143459 (Version 3)
Quarter: 2025Q4

REPORT INFORMATION
  Report Type: Spontaneous
  Country: US (occurrence: US)
  Receive Date: 20251211
  Receipt Date: 20251215
  Transmission Date: 20260117
  Serious: No
  Sender: NOVARTIS
  Company Number: US-002147023-NVSC2025US189462

PATIENT
  Sex: Female

DRUGS (1)
  1. RHAPSIDO [Suspect]
     Active Substance: REMIBRUTINIB
     Indication: Product used for unknown indication
     Dosage: 25 MG, BID
     Route: 048

REACTIONS (2)
  - Petechiae [Recovered/Resolved]
  - Product dose omission issue [Recovered/Resolved]
